FAERS Safety Report 15567408 (Version 2)
Quarter: 2018Q4

REPORT INFORMATION
  Report Type: Spontaneous
  Country: NO (occurrence: NO)
  Receive Date: 20181030
  Receipt Date: 20181207
  Transmission Date: 20190205
  Serious: Yes (Life-Threatening, Disabling)
  Sender: FDA-Public Use
  Company Number: NO-TEVA-2018-NO-969707

PATIENT
  Age: 40 Year
  Sex: Male
  Weight: 73 kg

DRUGS (18)
  1. SEROQUEL [Concomitant]
     Active Substance: QUETIAPINE FUMARATE
     Indication: ANXIETY
     Route: 048
     Dates: end: 201805
  2. QUETIAPINE. [Concomitant]
     Active Substance: QUETIAPINE
     Indication: ANXIETY
     Dates: end: 201805
  3. VALLERGAN [Concomitant]
     Active Substance: TRIMEPRAZINE
     Indication: ANXIETY
     Route: 048
     Dates: end: 201805
  4. ZYPREXA [Concomitant]
     Active Substance: OLANZAPINE
     Indication: ANXIETY
     Route: 048
     Dates: end: 201805
  5. SOBRIL [Suspect]
     Active Substance: OXAZEPAM
     Indication: ANXIETY
     Route: 065
     Dates: start: 20080101, end: 20180101
  6. HEMINEVRIN [Concomitant]
     Active Substance: CLOMETHIAZOLE
     Indication: ANXIETY
     Route: 048
     Dates: end: 201805
  7. XANOR [Concomitant]
     Active Substance: ALPRAZOLAM
     Indication: ANXIETY
     Route: 048
     Dates: end: 201805
  8. ABILIFY [Concomitant]
     Active Substance: ARIPIPRAZOLE
     Indication: ANXIETY
     Route: 048
     Dates: end: 201805
  9. BUSPIRONE [Concomitant]
     Active Substance: BUSPIRONE HYDROCHLORIDE
     Indication: ANXIETY
     Dates: end: 201805
  10. ZOLOFT [Concomitant]
     Active Substance: SERTRALINE HYDROCHLORIDE
     Indication: ANXIETY
     Route: 048
     Dates: end: 201805
  11. OLANZAPINE. [Concomitant]
     Active Substance: OLANZAPINE
     Indication: ANXIETY
     Dates: end: 201805
  12. IMOVANE [Concomitant]
     Active Substance: ZOPICLONE
     Indication: ANXIETY
     Route: 048
     Dates: end: 201805
  13. ATARAX [Concomitant]
     Active Substance: HYDROXYZINE HYDROCHLORIDE
     Indication: ANXIETY
     Route: 048
     Dates: end: 201805
  14. WELLBUTRIN [Concomitant]
     Active Substance: BUPROPION HYDROCHLORIDE
     Indication: ANXIETY
     Route: 048
     Dates: end: 201805
  15. VIVAL [Concomitant]
     Active Substance: DIAZEPAM
     Indication: ANXIETY
     Dates: end: 201805
  16. TRUXAL [Concomitant]
     Active Substance: CHLORPROTHIXENE
     Indication: ANXIETY
     Route: 048
     Dates: end: 201805
  17. TRILAFON [Concomitant]
     Active Substance: PERPHENAZINE
     Indication: ANXIETY
     Route: 048
     Dates: end: 201805
  18. RISPERDAL [Concomitant]
     Active Substance: RISPERIDONE
     Indication: ANXIETY
     Route: 048
     Dates: end: 201805

REACTIONS (4)
  - Vision blurred [Not Recovered/Not Resolved]
  - Balance disorder [Not Recovered/Not Resolved]
  - Headache [Not Recovered/Not Resolved]
  - Muscle spasms [Not Recovered/Not Resolved]

NARRATIVE: CASE EVENT DATE: 20180101
